FAERS Safety Report 9462234 (Version 2)
Quarter: 2013Q3

REPORT INFORMATION
  Report Type: Spontaneous
  Country: US (occurrence: None)
  Receive Date: 20130813
  Receipt Date: 20130826
  Transmission Date: 20140515
  Serious: Yes (Other)
  Sender: FDA-Public Use
  Company Number: TPA2013A07555

PATIENT
  Sex: Male
  Weight: 74.84 kg

DRUGS (4)
  1. ULORIC (FEBUXOSTAT) [Suspect]
     Indication: HYPERURICAEMIA
     Route: 048
     Dates: end: 20130807
  2. LASIX (FUROSEMIDE) [Concomitant]
  3. ALL OTHER THERAPEUTIC PRODUCTS [Concomitant]
  4. INDOCIN (INDOMETACIN) [Concomitant]

REACTIONS (1)
  - Gastrointestinal haemorrhage [None]
